FAERS Safety Report 9306847 (Version 1)
Quarter: 2013Q2

REPORT INFORMATION
  Report Type: Spontaneous
  Country: US (occurrence: US)
  Receive Date: 20130523
  Receipt Date: 20130523
  Transmission Date: 20140414
  Serious: Yes (Other)
  Sender: FDA-Public Use
  Company Number: CHPA2013US008408

PATIENT
  Age: 71 Year
  Sex: Female

DRUGS (4)
  1. VOLTAREN GEL [Suspect]
     Indication: GOUTY ARTHRITIS
     Dosage: ^A SMALL AMOUNT^, BID
     Route: 061
     Dates: start: 2010
  2. MICARDIS [Concomitant]
     Dosage: 80 MG, UNK
     Route: 048
     Dates: start: 201303
  3. MINOXIDIL [Concomitant]
     Dosage: 2.5 MG, UNK
     Route: 048
     Dates: start: 20130218, end: 201304
  4. HYDROCODONE [Concomitant]
     Indication: PAIN IN EXTREMITY
     Dosage: UNK, PRN PAIN
     Route: 048
     Dates: start: 20121215, end: 201304

REACTIONS (6)
  - Coronary artery disease [Not Recovered/Not Resolved]
  - Migraine [Recovered/Resolved]
  - Off label use [Unknown]
  - Therapeutic response unexpected [Unknown]
  - Drug administered at inappropriate site [Unknown]
  - Wrong technique in drug usage process [Unknown]
